FAERS Safety Report 18156589 (Version 1)
Quarter: 2020Q3

REPORT INFORMATION
  Report Type: Spontaneous
  Country: US (occurrence: US)
  Receive Date: 20200816
  Receipt Date: 20200816
  Transmission Date: 20201103
  Serious: Yes (Hospitalization)
  Sender: FDA-Public Use
  Company Number: None

PATIENT
  Age: 15 Year
  Sex: Male
  Weight: 56 kg

DRUGS (5)
  1. OXBRYTA [Suspect]
     Active Substance: VOXELOTOR
     Indication: SICKLE CELL DISEASE
     Route: 048
     Dates: start: 20200501
  2. ALBUTEROL. [Concomitant]
     Active Substance: ALBUTEROL
  3. PENICILLIN [Concomitant]
     Active Substance: PENICILLIN
  4. HYDROXYUREA. [Concomitant]
     Active Substance: HYDROXYUREA
  5. ADVAIR HFA [Concomitant]
     Active Substance: FLUTICASONE PROPIONATE\SALMETEROL XINAFOATE

REACTIONS (4)
  - Rash maculo-papular [None]
  - Therapy interrupted [None]
  - Rash erythematous [None]
  - Pyrexia [None]

NARRATIVE: CASE EVENT DATE: 20200510
